FAERS Safety Report 9173603 (Version 4)
Quarter: 2013Q2

REPORT INFORMATION
  Report Type: Spontaneous
  Country: FR (occurrence: None)
  Receive Date: 20130201
  Receipt Date: 20130411
  Transmission Date: 20140414
  Serious: Yes (Hospitalization, Other)
  Sender: FDA-Public Use
  Company Number: 2013034550

PATIENT
  Age: 1 Month
  Sex: Male

DRUGS (1)
  1. RHOPHYLAC [Suspect]

REACTIONS (7)
  - Maternal drugs affecting foetus [None]
  - Cytomegalovirus test positive [None]
  - Foetal growth restriction [None]
  - Thrombocytopenia [None]
  - Hypoglycaemia [None]
  - Jaundice [None]
  - Cytomegalovirus infection [None]
